FAERS Safety Report 15419535 (Version 1)
Quarter: 2018Q4

REPORT INFORMATION
  Report Type: Spontaneous
  Country: US (occurrence: US)
  Receive Date: 20180924
  Receipt Date: 20180924
  Transmission Date: 20190204
  Serious: No
  Sender: FDA-Public Use
  Company Number: US-AVEDRO-AVE-2018-0191-AE

PATIENT
  Sex: Female

DRUGS (2)
  1. ZADITOR [Concomitant]
     Active Substance: KETOTIFEN FUMARATE
     Indication: KERATOCONUS
     Route: 047
     Dates: start: 2018
  2. AVEDRO CROSS-LINKING PRODUCT(S), UNSPECIFIED (RIBOFLAVIN 5^-PHOSPHATE SODIUM) [Suspect]
     Active Substance: RIBOFLAVIN 5^-PHOSPHATE SODIUM
     Indication: KERATOCONUS
     Route: 047
     Dates: start: 2018, end: 2018

REACTIONS (11)
  - Eye irritation [Recovering/Resolving]
  - Insomnia [Recovered/Resolved]
  - Eye discharge [Unknown]
  - Photophobia [Recovering/Resolving]
  - Pain [Recovering/Resolving]
  - Instillation site dryness [Recovered/Resolved]
  - Eye swelling [Unknown]
  - Vision blurred [Recovered/Resolved]
  - Ocular discomfort [Unknown]
  - Diplopia [Unknown]
  - Eye pain [Recovering/Resolving]

NARRATIVE: CASE EVENT DATE: 2018
